FAERS Safety Report 8267550-1 (Version None)
Quarter: 2012Q2

REPORT INFORMATION
  Report Type: 
  Country: None (occurrence: None)
  Receive Date: 20120404
  Receipt Date: 20120321
  Transmission Date: 20120825
  Serious: Yes (Hospitalization)
  Sender: FDA-Public Use
  Company Number: 2012030171

PATIENT
  Age: 70 Year
  Sex: Female

DRUGS (17)
  1. CORDARONE [Concomitant]
  2. RAMIPRIL [Suspect]
     Dosage: 1-0-0 (2.5 MG, 1 IN 1 D), ORAL
     Dates: end: 20120103
  3. RAMIPRIL [Suspect]
     Dosage: 1-0-0 (2.5 MG, 1 IN 1 D), ORAL
     Dates: start: 20120110
  4. ALDACTONE [Suspect]
     Dosage: 1-0-0 (25 MG, 1 IN 1D), ORAL
     Route: 048
     Dates: end: 20120104
  5. MARCUMAR [Concomitant]
  6. BISOPROLOL FUMARATE [Concomitant]
  7. ATORVASTATIN CALCIUM [Concomitant]
  8. METFORMIN HCL [Concomitant]
  9. TORSEMIDE [Suspect]
     Dosage: 10 MG, ORAL
     Dates: start: 20111223, end: 20120103
  10. TORSEMIDE [Suspect]
     Dosage: 10 MG, ORAL
     Dates: start: 20120113
  11. ROCALTROL [Concomitant]
  12. CIPROFLOXACIN HYDROCHLORIDE [Suspect]
     Indication: WOUND INFECTION BACTERIAL
     Dosage: 1-0-1 (750 MG, 2 IN 1 D), ORAL
     Route: 048
     Dates: start: 20111223, end: 20120102
  13. PREDNISONE [Concomitant]
  14. PANTOPRAZOLE SODIUM [Concomitant]
  15. ACETAMINOPHEN [Concomitant]
  16. MOTILIUM [Concomitant]
  17. CO-AMOXI (AMOXILLIN TRIHYDRATE, CLACULANTE POTASSIUM) [Concomitant]

REACTIONS (9)
  - FAT EMBOLISM [None]
  - INFECTION [None]
  - RENAL FAILURE ACUTE [None]
  - DRUG INTERACTION [None]
  - RENAL CYST [None]
  - CARDIAC FAILURE [None]
  - PROTEINURIA [None]
  - POLYARTHRITIS [None]
  - TUBULOINTERSTITIAL NEPHRITIS [None]
